FAERS Safety Report 7418363-1 (Version None)
Quarter: 2011Q2

REPORT INFORMATION
  Report Type: 
  Country: None (occurrence: None)
  Receive Date: 20110415
  Receipt Date: 20110311
  Transmission Date: 20111010
  Serious: Yes (Hospitalization)
  Sender: FDA-Public Use
  Company Number: B0706846A

PATIENT
  Age: 71 Year
  Sex: Female

DRUGS (4)
  1. ELTROXIN [Concomitant]
  2. TRANYLCYPROMINE SULFATE [Suspect]
     Indication: DEPRESSION
     Route: 065
  3. DIAZEPAM [Concomitant]
  4. LITHIUM [Suspect]
     Indication: DEPRESSION
     Route: 065

REACTIONS (11)
  - ENCEPHALOPATHY [None]
  - DRUG INTERACTION [None]
  - DELIRIUM [None]
  - DISORIENTATION [None]
  - NEUROTOXICITY [None]
  - DISTURBANCE IN ATTENTION [None]
  - HYPERTENSION [None]
  - CIRCULATORY COLLAPSE [None]
  - CONFUSIONAL STATE [None]
  - APRAXIA [None]
  - BLOOD CREATININE INCREASED [None]
